FAERS Safety Report 6879848-X (Version None)
Quarter: 2010Q3

REPORT INFORMATION
  Report Type: 
  Country: None (occurrence: None)
  Receive Date: 20100728
  Receipt Date: 20100715
  Transmission Date: 20110219
  Serious: Yes (Hospitalization, Other)
  Sender: FDA-Public Use
  Company Number: US-CELGENEUS-163-21880-10071350

PATIENT
  Sex: Male

DRUGS (2)
  1. REVLIMID [Suspect]
     Indication: MULTIPLE MYELOMA
     Route: 048
     Dates: start: 20100601
  2. WHOLE BLOOD [Concomitant]
     Indication: PRODUCT USED FOR UNKNOWN INDICATION
     Dosage: 3
     Route: 051

REACTIONS (5)
  - BLOOD COUNT ABNORMAL [None]
  - CONSTIPATION [None]
  - INSOMNIA [None]
  - POLLAKIURIA [None]
  - PYREXIA [None]
